FAERS Safety Report 7023595-0 (Version None)
Quarter: 2010Q3

REPORT INFORMATION
  Report Type: 
  Country: None (occurrence: None)
  Receive Date: 20100930
  Receipt Date: 20100930
  Transmission Date: 20110219
  Serious: Yes (Life-Threatening, Hospitalization, Disabling)
  Sender: FDA-Public Use
  Company Number: None

PATIENT
  Sex: Male
  Weight: 86.1834 kg

DRUGS (2)
  1. LOVENOX [Suspect]
     Indication: ATRIAL FIBRILLATION
     Dosage: 80 MG BID SUBCUT
     Route: 058
     Dates: start: 20090909, end: 20090916
  2. LOVENOX [Suspect]
     Indication: HYPERSENSITIVITY
     Dosage: 80 MG BID SUBCUT
     Route: 058
     Dates: start: 20090909, end: 20090916

REACTIONS (4)
  - CEREBROVASCULAR ACCIDENT [None]
  - DIABETES MELLITUS [None]
  - RENAL HAEMORRHAGE [None]
  - RENAL IMPAIRMENT [None]
